FAERS Safety Report 9525759 (Version 1)
Quarter: 2013Q1

REPORT INFORMATION
  Report Type: Spontaneous
  Country: US (occurrence: None)
  Receive Date: 20130314
  Receipt Date: 20130314
  Transmission Date: 20140127
  Serious: No
  Sender: FDA-Public Use
  Company Number: 1204USA01407

PATIENT
  Sex: Female

DRUGS (1)
  1. IVEMEND [Suspect]
     Indication: NAUSEA
     Dosage: ONE DOSE BEFORE CHEMO, IV DRIP
     Dates: start: 20120410

REACTIONS (2)
  - Dyspnoea [None]
  - Erythema [None]
